FAERS Safety Report 17880628 (Version 1)
Quarter: 2020Q2

REPORT INFORMATION
  Report Type: Spontaneous
  Country: US (occurrence: US)
  Receive Date: 20200610
  Receipt Date: 20200610
  Transmission Date: 20200714
  Serious: Yes (Other)
  Sender: FDA-Public Use
  Company Number: US-PFIZER INC-2020225072

PATIENT
  Age: 75 Year
  Sex: Male
  Weight: 73.48 kg

DRUGS (2)
  1. VIAGRA [Suspect]
     Active Substance: SILDENAFIL CITRATE
     Indication: PROSTATECTOMY
     Dosage: 100 MG
  2. TRULICITY [Concomitant]
     Active Substance: DULAGLUTIDE
     Indication: DIABETES MELLITUS
     Dosage: UNK(075 MG, 05 ML)

REACTIONS (4)
  - Off label use [Unknown]
  - Drug ineffective [Unknown]
  - Blindness [Unknown]
  - Product use in unapproved indication [Unknown]
